FAERS Safety Report 4819404-8 (Version None)
Quarter: 2005Q4

REPORT INFORMATION
  Report Type: 
  Country: None (occurrence: None)
  Receive Date: 20051031
  Receipt Date: 20050723
  Transmission Date: 20060501
  Serious: No
  Sender: FDA-Public Use
  Company Number: 2005PV000575

PATIENT
  Age: 57 Year
  Sex: Male
  Weight: 141.5223 kg

DRUGS (11)
  1. SYMLIN [Suspect]
     Indication: DIABETES MELLITUS NON-INSULIN-DEPENDENT
     Dosage: 120 MCG; TID; SC
     Route: 058
     Dates: start: 20050713
  2. GLUCOPHAGE [Concomitant]
  3. AVALIDE [Concomitant]
  4. CLONIDINE [Concomitant]
  5. DYNACIRC [Concomitant]
  6. CHOLESTEROL MED [Concomitant]
  7. ASPIRIN [Concomitant]
  8. VITAMINS [Concomitant]
  9. GRAPESEED EXTRACT [Concomitant]
  10. INDIAND SUPPLEMENT FOR DIABETES [Concomitant]
  11. INSULIN [Concomitant]

REACTIONS (3)
  - EARLY SATIETY [None]
  - NAUSEA [None]
  - WEIGHT DECREASED [None]
